FAERS Safety Report 6339633-4 (Version None)
Quarter: 2009Q3

REPORT INFORMATION
  Report Type: 
  Country: None (occurrence: None)
  Receive Date: 20090903
  Receipt Date: 20090902
  Transmission Date: 20100115
  Serious: Yes (Hospitalization)
  Sender: FDA-Public Use
  Company Number: US-B.I. PHARMACEUTICALS,INC./RIDGEFIELD-2009-BP-09227BP

PATIENT
  Sex: Female

DRUGS (12)
  1. COMBIVENT [Suspect]
     Indication: CHRONIC OBSTRUCTIVE PULMONARY DISEASE
  2. COMBIVENT [Suspect]
     Indication: EMPHYSEMA
  3. NORCO [Concomitant]
  4. TRAZODONE HCL [Concomitant]
     Dosage: 50 MG
  5. FLUROSEMIDE [Concomitant]
     Dosage: 80 MG
  6. OXYBUTIN [Concomitant]
     Dosage: 10 MG
  7. GABAPENTIN [Concomitant]
     Dosage: 100 MG
  8. PAROXETINE [Concomitant]
     Dosage: 10 MG
  9. LABETALOL HCL [Concomitant]
  10. RANITIDINE [Concomitant]
     Dosage: 300 MG
  11. MAGNESIUM [Concomitant]
  12. PARAGORIC [Concomitant]

REACTIONS (4)
  - DYSPNOEA [None]
  - INFLUENZA [None]
  - PNEUMONIA [None]
  - STAPHYLOCOCCAL INFECTION [None]
